FAERS Safety Report 5387526-1 (Version None)
Quarter: 2007Q3

REPORT INFORMATION
  Report Type: 
  Country: None (occurrence: None)
  Receive Date: 20070712
  Receipt Date: 20070704
  Transmission Date: 20080115
  Serious: Yes (Other)
  Sender: FDA-Public Use
  Company Number: 2007VX001790

PATIENT
  Age: 58 Year
  Sex: Female

DRUGS (2)
  1. INFERGEN [Suspect]
     Indication: HEPATITIS C
     Dosage: 12 UG; QD; SC
     Route: 058
     Dates: start: 20060725, end: 20060807
  2. INFERGEN [Suspect]
     Indication: HEPATITIS C
     Dosage: 12 UG; QD; SC
     Route: 058
     Dates: start: 20060809, end: 20070303

REACTIONS (4)
  - ERYTHEMA [None]
  - OEDEMA PERIPHERAL [None]
  - PAIN IN EXTREMITY [None]
  - SUBCUTANEOUS NODULE [None]
